FAERS Safety Report 20082121 (Version 1)
Quarter: 2021Q4

REPORT INFORMATION
  Report Type: Spontaneous
  Country: US (occurrence: US)
  Receive Date: 20211117
  Receipt Date: 20211117
  Transmission Date: 20220303
  Serious: Yes (Other)
  Sender: FDA-Public Use
  Company Number: US-GLAXOSMITHKLINE-US2021GSK237210

PATIENT
  Sex: Female

DRUGS (12)
  1. ZANTAC [Suspect]
     Active Substance: RANITIDINE HYDROCHLORIDE
     Indication: Gastrooesophageal reflux disease
     Dosage: 75 MG, QD 1 - 2 TIMES A DAY
     Route: 065
     Dates: start: 198001, end: 200601
  2. ZANTAC [Suspect]
     Active Substance: RANITIDINE HYDROCHLORIDE
     Dosage: 150 MG, BID 1 - 2 TIMES A DAY
     Route: 065
     Dates: start: 198001, end: 200601
  3. ZANTAC [Suspect]
     Active Substance: RANITIDINE HYDROCHLORIDE
     Indication: Gastrooesophageal reflux disease
     Dosage: 75 MG, QD  1 - 2 TIMES A DAY
     Route: 065
     Dates: start: 198001, end: 200601
  4. ZANTAC [Suspect]
     Active Substance: RANITIDINE HYDROCHLORIDE
     Dosage: 150 MG, BID  1 - 2 TIMES A DAY
     Route: 065
     Dates: start: 198001, end: 200601
  5. RANITIDINE [Suspect]
     Active Substance: RANITIDINE
     Indication: Gastrooesophageal reflux disease
     Dosage: 75 MG, QD  1 - 2 TIMES A DAY
     Route: 065
     Dates: start: 198001, end: 200601
  6. RANITIDINE [Suspect]
     Active Substance: RANITIDINE
     Dosage: 150 MG, BID  1 - 2 TIMES A DAY
     Route: 065
     Dates: start: 198001, end: 200601
  7. RANITIDINE HYDROCHLORIDE [Suspect]
     Active Substance: RANITIDINE HYDROCHLORIDE
     Indication: Gastrooesophageal reflux disease
     Dosage: 75 MG, QD  1 - 2 TIMES A DAY
     Route: 065
     Dates: start: 198001, end: 200601
  8. RANITIDINE HYDROCHLORIDE [Suspect]
     Active Substance: RANITIDINE HYDROCHLORIDE
     Dosage: 150 MG, BID  1 - 2 TIMES A DAY
     Route: 065
     Dates: start: 198001, end: 200601
  9. RANITIDINE HYDROCHLORIDE [Suspect]
     Active Substance: RANITIDINE HYDROCHLORIDE
     Indication: Gastrooesophageal reflux disease
     Dosage: 75 MG, QD  1 - 2 TIMES A DAY
     Route: 065
     Dates: start: 198001, end: 200601
  10. RANITIDINE HYDROCHLORIDE [Suspect]
     Active Substance: RANITIDINE HYDROCHLORIDE
     Dosage: 150 MG, BID  1 - 2 TIMES A DAY
     Route: 065
     Dates: start: 198001, end: 200601
  11. RANITIDINE [Suspect]
     Active Substance: RANITIDINE
     Indication: Gastrooesophageal reflux disease
     Dosage: 75 MG, QD  1 - 2 TIMES A DAY
     Route: 065
     Dates: start: 198001, end: 200601
  12. RANITIDINE [Suspect]
     Active Substance: RANITIDINE
     Dosage: 150 MG, BID  1 - 2 TIMES A DAY
     Route: 065
     Dates: start: 198001, end: 200601

REACTIONS (1)
  - Colorectal cancer [Unknown]
